FAERS Safety Report 4601819-4 (Version None)
Quarter: 2005Q1

REPORT INFORMATION
  Report Type: 
  Country: None (occurrence: None)
  Receive Date: 20050131
  Receipt Date: 20041206
  Transmission Date: 20050727
  Serious: Yes (Other)
  Sender: FDA-Public Use
  Company Number: 200417770US

PATIENT
  Age: 45 Year
  Sex: Female
  Weight: 44.1 kg

DRUGS (3)
  1. KETEK [Suspect]
     Indication: SINUSITIS
     Dosage: 400 MG HS PO
     Route: 048
     Dates: start: 20040917, end: 20040922
  2. ETHINYLESTRADIOL, LEVONORGESTREL (ALESSE) [Concomitant]
  3. PSEUDOEPHEDRINE HYDROCHLORIDE, GUAIFENESIN (DURATUSS GP) [Concomitant]

REACTIONS (15)
  - ASTHENIA [None]
  - BLOOD BILIRUBIN INCREASED [None]
  - BLOOD PRESSURE INCREASED [None]
  - DIARRHOEA [None]
  - DIZZINESS [None]
  - EYE MOVEMENT DISORDER [None]
  - FEELING ABNORMAL [None]
  - HEART RATE INCREASED [None]
  - NAUSEA [None]
  - NUCLEAR MAGNETIC RESONANCE IMAGING ABNORMAL [None]
  - PARAESTHESIA [None]
  - PRURITUS [None]
  - SOMNOLENCE [None]
  - TENSION HEADACHE [None]
  - VISUAL DISTURBANCE [None]
